FAERS Safety Report 7570760-X (Version None)
Quarter: 2011Q2

REPORT INFORMATION
  Report Type: 
  Country: None (occurrence: None)
  Receive Date: 20110624
  Receipt Date: 20110610
  Transmission Date: 20111010
  Serious: Yes (Other)
  Sender: FDA-Public Use
  Company Number: US-ELI_LILLY_AND_COMPANY-US201006007332

PATIENT
  Sex: Male

DRUGS (17)
  1. DIGOXIN [Concomitant]
  2. ALLOPURINOL [Concomitant]
  3. ROXANOL [Concomitant]
  4. COREG [Concomitant]
  5. LORTAB [Concomitant]
  6. FORTEO [Suspect]
     Dosage: 20 UG, QD
  7. LANTUS [Concomitant]
  8. FORTEO [Suspect]
     Dosage: 20 UG, DAILY (1/D)
  9. COMPAZINE [Concomitant]
  10. CALCIUM CARBONATE [Concomitant]
  11. FLOMAX [Concomitant]
  12. COLACE [Concomitant]
  13. MS CONTIN [Concomitant]
  14. LIPITOR [Concomitant]
  15. TYLENOL (CAPLET) [Concomitant]
  16. LISINOPRIL [Concomitant]
  17. NOVOLOG [Concomitant]

REACTIONS (3)
  - MALAISE [None]
  - NON-HODGKIN'S LYMPHOMA [None]
  - SURGERY [None]
